FAERS Safety Report 16060993 (Version 1)
Quarter: 2019Q1

REPORT INFORMATION
  Report Type: Spontaneous
  Country: US (occurrence: US)
  Receive Date: 20190312
  Receipt Date: 20190312
  Transmission Date: 20190418
  Serious: No
  Sender: FDA-Public Use
  Company Number: US-ROCHE-2089817

PATIENT
  Sex: Female

DRUGS (1)
  1. AVASTIN [Suspect]
     Active Substance: BEVACIZUMAB
     Indication: RETINAL VASCULAR OCCLUSION
     Route: 065
     Dates: start: 2017

REACTIONS (4)
  - Loose tooth [Unknown]
  - Epistaxis [Unknown]
  - Intentional product use issue [Unknown]
  - Off label use [Unknown]
